FAERS Safety Report 5707148-X (Version None)
Quarter: 2008Q2

REPORT INFORMATION
  Report Type: 
  Country: None (occurrence: None)
  Receive Date: 20080416
  Receipt Date: 20080409
  Transmission Date: 20081010
  Serious: Yes (Hospitalization, Other)
  Sender: FDA-Public Use
  Company Number: TR-ABBOTT-08P-161-0446211-00

PATIENT
  Age: 85 Year
  Sex: Female
  Weight: 45 kg

DRUGS (1)
  1. KLACID I.V. FALCON [Suspect]
     Indication: PNEUMONIA
     Route: 030
     Dates: start: 20080101

REACTIONS (2)
  - ABSCESS [None]
  - INCORRECT ROUTE OF DRUG ADMINISTRATION [None]
